FAERS Safety Report 24687469 (Version 1)
Quarter: 2024Q4

REPORT INFORMATION
  Report Type: Spontaneous
  Country: US (occurrence: None)
  Receive Date: 20241202
  Receipt Date: 20241202
  Transmission Date: 20250115
  Serious: No
  Sender: Public
  Company Number: None

PATIENT
  Sex: Female

DRUGS (8)
  1. AMBRISENTAN [Suspect]
     Active Substance: AMBRISENTAN
     Indication: Pulmonary arterial hypertension
     Dosage: FREQUENCY : DAILY;?
     Route: 048
  2. UPTRAVI [Concomitant]
     Active Substance: SELEXIPAG
  3. FLUTICASONE PROPIONATE [Concomitant]
     Active Substance: FLUTICASONE PROPIONATE
  4. ALBUTEROL SULFATE [Concomitant]
     Active Substance: ALBUTEROL SULFATE
  5. ALBUTEROL [Concomitant]
     Active Substance: ALBUTEROL
  6. IRON [Concomitant]
     Active Substance: IRON
  7. POTASSIUM [Concomitant]
     Active Substance: POTASSIUM
  8. FUROSEMIDE [Concomitant]
     Active Substance: FUROSEMIDE

REACTIONS (3)
  - Headache [None]
  - Arthralgia [None]
  - Product use issue [None]
